FAERS Safety Report 6043665-3 (Version None)
Quarter: 2009Q1

REPORT INFORMATION
  Report Type: 
  Country: None (occurrence: None)
  Receive Date: 20090115
  Receipt Date: 20090105
  Transmission Date: 20090719
  Serious: Yes (Hospitalization, Other)
  Sender: FDA-Public Use
  Company Number: GXKR2009JP00482

PATIENT
  Age: 85 Year
  Sex: Female
  Weight: 35 kg

DRUGS (3)
  1. FAMOTIDINE [Suspect]
     Dosage: 10 MG, BID;
  2. MOXIFLOXACIN HCL [Suspect]
     Indication: CELLULITIS
     Dosage: 400 MG, DAILY; ORAL
     Route: 048
  3. NIFEDIPINE [Concomitant]

REACTIONS (2)
  - BRADYCARDIA [None]
  - ELECTROCARDIOGRAM QT PROLONGED [None]
